FAERS Safety Report 12006940 (Version 2)
Quarter: 2016Q1

REPORT INFORMATION
  Report Type: Spontaneous
  Country: IT (occurrence: IT)
  Receive Date: 20160204
  Receipt Date: 20160211
  Transmission Date: 20160526
  Serious: Yes (Other)
  Sender: FDA-Public Use
  Company Number: IT-ELI_LILLY_AND_COMPANY-IT201602000301

PATIENT
  Age: 61 Year
  Sex: Male

DRUGS (5)
  1. PANTORC [Concomitant]
     Active Substance: PANTOPRAZOLE SODIUM
     Indication: GASTRITIS PROPHYLAXIS
     Dosage: 40 MG, UNKNOWN
     Route: 042
     Dates: start: 20160122, end: 20160122
  2. ERBITUX [Suspect]
     Active Substance: CETUXIMAB
     Indication: RECTAL CANCER STAGE IV
     Dosage: 704 MG, WEEKLY (1/W)
     Route: 042
     Dates: end: 20160122
  3. GRANISETRON B. BRAUN [Concomitant]
     Indication: PROPHYLAXIS OF NAUSEA AND VOMITING
     Dosage: 3 MG, UNKNOWN
     Route: 042
     Dates: start: 20160122, end: 20160122
  4. DEXAMETHASONE PHOSPHATE [Concomitant]
     Active Substance: DEXAMETHASONE PHOSPHATE
     Indication: ALLERGY PROPHYLAXIS
     Dosage: 8 MG, UNKNOWN
     Route: 042
     Dates: start: 20160122, end: 20160122
  5. FEXOFENADINE HYDROCHLORIDE. [Concomitant]
     Active Substance: FEXOFENADINE HYDROCHLORIDE
     Indication: ALLERGY PROPHYLAXIS
     Dosage: 180 MG, UNKNOWN
     Route: 048
     Dates: start: 20160122, end: 20160122

REACTIONS (2)
  - Feeling hot [Recovered/Resolved]
  - Flushing [Recovered/Resolved]

NARRATIVE: CASE EVENT DATE: 20160122
